FAERS Safety Report 9036960 (Version 1)
Quarter: 2013Q1

REPORT INFORMATION
  Report Type: Spontaneous
  Country: FR (occurrence: None)
  Receive Date: 20130110
  Receipt Date: 20130110
  Transmission Date: 20140127
  Serious: Yes (Hospitalization)
  Sender: FDA-Public Use
  Company Number: 2013034387

PATIENT
  Age: 46 Year
  Sex: Female

DRUGS (13)
  1. PRIVIGEN (IMMUNE GLOBULIN INTRAVENOUS (HUMAN) 10% LIQUID) [Suspect]
     Indication: MUSCULAR WEAKNESS
     Dosage: (NOT OTHERWISE SPECIFIED)
     Route: 042
     Dates: start: 20121128
  2. CELLCEPT (MYCOPHENOLATE MOFETIL) [Concomitant]
  3. LASILIX (FUROSEMIDE) [Concomitant]
  4. INEXIUM (ESOMEPRAZOLE MAGNESIUM) [Concomitant]
  5. MESTINON (PYRIDOSTIGMINE BROMIDE) [Concomitant]
  6. ATARAX (HYDROXYZINE) [Concomitant]
  7. LAMALINE (LAMALINE/00764901/) [Concomitant]
  8. PREVISION (FLUINDIONE) [Concomitant]
  9. PLAQUENIL (HYDROXYCHLOROQUINE PHOSPHATE) [Concomitant]
  10. NEURONTIN (GABAPENTIN) [Concomitant]
  11. COAPPROVAL (KARVEA HCT) [Concomitant]
  12. HYDROCORTISONE (HYDROCORTISIONE) [Concomitant]
  13. DIFFU K (POTASSIUM CHLORIDE) [Concomitant]

REACTIONS (3)
  - Acute respiratory failure [None]
  - Flushing [None]
  - Dyspnoea [None]
